FAERS Safety Report 7153508-2 (Version None)
Quarter: 2010Q4

REPORT INFORMATION
  Report Type: 
  Country: None (occurrence: None)
  Receive Date: 20101213
  Receipt Date: 20101206
  Transmission Date: 20110411
  Serious: Yes (Hospitalization)
  Sender: FDA-Public Use
  Company Number: B0688460A

PATIENT
  Sex: Female

DRUGS (3)
  1. AUGMENTIN [Suspect]
     Dosage: 100MG PER DAY
     Route: 048
     Dates: start: 20101113, end: 20101113
  2. NIMESULIDE [Suspect]
     Route: 048
     Dates: start: 20101113, end: 20101113
  3. EUTHYROX [Concomitant]

REACTIONS (3)
  - FACE OEDEMA [None]
  - OEDEMA PERIPHERAL [None]
  - PRURITUS [None]
